FAERS Safety Report 23250532 (Version 1)
Quarter: 2023Q4

REPORT INFORMATION
  Report Type: Spontaneous
  Country: US (occurrence: None)
  Receive Date: 20231130
  Receipt Date: 20231130
  Transmission Date: 20240109
  Serious: Yes (Hospitalization)
  Sender: FDA-Public Use
  Company Number: None

PATIENT
  Age: 82 Year
  Sex: Male

DRUGS (14)
  1. DAURISMO [Suspect]
     Active Substance: GLASDEGIB
     Indication: Acute myeloid leukaemia
     Dosage: 50MG QD ORALLY
     Route: 048
     Dates: start: 20230729, end: 202311
  2. ACYCLOVIR [Concomitant]
     Active Substance: ACYCLOVIR
  3. ONDANSETRON [Concomitant]
     Active Substance: ONDANSETRON
  4. DULCOLAX EC [Concomitant]
  5. MRIALAX 3350 NF POWDER [Concomitant]
  6. AMLODIPINE BESYLATE [Concomitant]
     Active Substance: AMLODIPINE BESYLATE
  7. EPLERENONE [Concomitant]
     Active Substance: EPLERENONE
  8. LUNESTA [Concomitant]
     Active Substance: ESZOPICLONE
  9. SYNTHROID [Concomitant]
     Active Substance: LEVOTHYROXINE SODIUM
  10. VALSARTAN [Concomitant]
     Active Substance: VALSARTAN
  11. BOOSTRIX [Concomitant]
     Active Substance: TETANUS TOXOID, REDUCED DIPHTHERIA TOXOID AND ACELLULAR PERTUSSIS VACCINE, ADSORBED ANTIGENS
  12. COVID 19 VAC/MODERNA BOOSTER [Concomitant]
  13. PREVNAR 13 [Concomitant]
     Active Substance: PNEUMOCOCCAL 13-VALENT CONJUGATE VACCINE
  14. SHINGRIX [Concomitant]

REACTIONS (1)
  - Cardiac disorder [None]

NARRATIVE: CASE EVENT DATE: 20231101
